FAERS Safety Report 7277111-9 (Version None)
Quarter: 2011Q1

REPORT INFORMATION
  Report Type: 
  Country: None (occurrence: None)
  Receive Date: 20110202
  Receipt Date: 20110202
  Transmission Date: 20110831
  Serious: Yes (Death)
  Sender: FDA-Public Use
  Company Number: None

PATIENT
  Age: 96 Year
  Sex: Female

DRUGS (2)
  1. PROPOXYPHENE HYDROCHLORIDE [Suspect]
     Indication: MUSCULOSKELETAL PAIN
     Dosage: EVERY 4 HRS. ORAL
     Route: 048
     Dates: start: 20100801, end: 20101201
  2. PROPOXYPHENE HYDROCHLORIDE [Suspect]
     Indication: ARTHRALGIA
     Dosage: EVERY 4 HRS. ORAL
     Route: 048
     Dates: start: 20100801, end: 20101201

REACTIONS (7)
  - DYSPNOEA [None]
  - NAUSEA [None]
  - CARDIAC DISORDER [None]
  - POLLAKIURIA [None]
  - PAIN [None]
  - MYOCARDIAL INFARCTION [None]
  - PRODUCT QUALITY ISSUE [None]
